FAERS Safety Report 9707800 (Version 5)
Quarter: 2014Q1

REPORT INFORMATION
  Report Type: Spontaneous
  Country: CA (occurrence: CA)
  Receive Date: 20131125
  Receipt Date: 20140219
  Transmission Date: 20141002
  Serious: Yes (Other)
  Sender: FDA-Public Use
  Company Number: CA-ASTELLAS-2013US011186

PATIENT
  Age: 82 Year
  Sex: Female
  Weight: 52 kg

DRUGS (9)
  1. MYRBETRIQ [Suspect]
     Indication: HYPERTONIC BLADDER
     Dosage: 25 MG, UID/QD
     Route: 048
     Dates: start: 20131016
  2. MYRBETRIQ [Suspect]
     Dosage: 25 MG, UID/QD
     Route: 048
     Dates: start: 20131111
  3. ANTIHYPERTENSIVES [Concomitant]
     Indication: BLOOD PRESSURE
     Dosage: UNK
     Route: 048
  4. CRESTOR [Concomitant]
     Indication: BLOOD CHOLESTEROL
     Dosage: 10 MG, UID/QD
     Route: 048
     Dates: start: 20121101
  5. TECTA [Concomitant]
     Indication: GASTROOESOPHAGEAL REFLUX DISEASE
     Dosage: 40 MG, UID/QD
     Route: 048
     Dates: start: 20121101
  6. AMLODIPINE [Concomitant]
     Indication: HYPERTENSION
     Dosage: 10 MG, UID/QD
     Route: 048
     Dates: start: 20121101
  7. SYNTHROID [Concomitant]
     Indication: THYROID DISORDER
     Dosage: 0.88 UNK, UID/QD
     Route: 048
     Dates: start: 20121101
  8. LORAZEPAM [Concomitant]
     Indication: SLEEP DISORDER
     Dosage: 1 MG, UID/QD
     Route: 048
     Dates: start: 20121101
  9. ACTONEL [Concomitant]
     Indication: OSTEOPOROSIS
     Dosage: 35 MG, UID/QD
     Route: 048
     Dates: start: 20121101

REACTIONS (3)
  - Gastritis [Unknown]
  - Hepatic pain [Not Recovered/Not Resolved]
  - Anxiety [Recovered/Resolved]
